FAERS Safety Report 18605609 (Version 1)
Quarter: 2020Q4

REPORT INFORMATION
  Report Type: Spontaneous
  Country: US (occurrence: US)
  Receive Date: 20201211
  Receipt Date: 20201211
  Transmission Date: 20210114
  Serious: Yes (Hospitalization)
  Sender: FDA-Public Use
  Company Number: US-PFIZER INC-2020488249

PATIENT
  Age: 54 Year
  Sex: Male
  Weight: 86.18 kg

DRUGS (3)
  1. BRILINTA [Concomitant]
     Active Substance: TICAGRELOR
     Indication: PROPHYLAXIS
     Dosage: 90 MG, 2X/DAY
  2. LIPITOR [Suspect]
     Active Substance: ATORVASTATIN CALCIUM
     Dosage: UNK (80)
  3. NORVASC [Suspect]
     Active Substance: AMLODIPINE BESYLATE
     Dosage: UNK (^5 MG BUT I AM LOOKING UP NORVASC, I DON^T SEE 5 MG NORVASC. I SEE 10 MG NORVASC, 1 DAILY^)

REACTIONS (1)
  - Myocardial infarction [Unknown]
